FAERS Safety Report 9356366 (Version 2)
Quarter: 2013Q3

REPORT INFORMATION
  Report Type: Report from Study
  Country: JP (occurrence: JP)
  Receive Date: 20130619
  Receipt Date: 20130809
  Transmission Date: 20140515
  Serious: Yes (Hospitalization)
  Sender: FDA-Public Use
  Company Number: JP-JNJFOC-20130610053

PATIENT
  Age: 62 Year
  Sex: Female
  Weight: 45 kg

DRUGS (16)
  1. SIMPONI [Suspect]
     Indication: RHEUMATOID ARTHRITIS
     Route: 058
     Dates: start: 20130319
  2. PREDNISOLONE [Suspect]
     Indication: RHEUMATOID ARTHRITIS
     Dosage: BEFORE NOV-2010
     Route: 048
  3. PROGRAFT [Suspect]
     Indication: RHEUMATOID ARTHRITIS
     Dates: start: 20121016
  4. SALAZOSULFAPYRIDINE [Concomitant]
     Indication: RHEUMATOID ARTHRITIS
  5. BUCILLAMINE [Concomitant]
     Indication: RHEUMATOID ARTHRITIS
  6. LOXONIN [Concomitant]
     Indication: RHEUMATOID ARTHRITIS
  7. ALESION [Concomitant]
     Indication: SEASONAL ALLERGY
     Route: 048
  8. METHYCOBAL [Concomitant]
     Indication: TUBULOINTERSTITIAL NEPHRITIS
     Route: 065
  9. OPALMON [Concomitant]
     Indication: SPINAL DISORDER
     Route: 048
  10. JANUVIA [Concomitant]
     Indication: DIABETES MELLITUS
     Route: 048
  11. TAKEPRON [Concomitant]
     Indication: GASTROOESOPHAGEAL REFLUX DISEASE
     Route: 048
  12. THYRADIN S [Concomitant]
     Indication: THYROIDITIS CHRONIC
     Route: 048
  13. CRESTOR [Concomitant]
     Indication: HYPERLIPIDAEMIA
     Route: 048
  14. BASEN [Concomitant]
     Indication: DIABETES MELLITUS
     Route: 048
  15. MAGLAX [Concomitant]
     Indication: CONSTIPATION
     Route: 048
  16. VOLTAREN [Concomitant]
     Indication: RHEUMATOID ARTHRITIS
     Route: 054

REACTIONS (1)
  - Pneumonia [Recovering/Resolving]
